FAERS Safety Report 8888969 (Version 1)
Quarter: 2012Q4

REPORT INFORMATION
  Report Type: Report from Study
  Country: FR (occurrence: FR)
  Receive Date: 20121106
  Receipt Date: 20121106
  Transmission Date: 20130627
  Serious: Yes (Death, Hospitalization)
  Sender: FDA-Public Use
  Company Number: FR-ROCHE-1151192

PATIENT
  Sex: Male

DRUGS (3)
  1. MYCOPHENOLATE MOFETIL [Suspect]
     Indication: RENAL TRANSPLANT
     Route: 048
     Dates: start: 20110526
  2. TACROLIMUS [Suspect]
     Indication: RENAL TRANSPLANT
     Route: 048
     Dates: start: 20110810
  3. PREDNISOLON [Suspect]
     Indication: RENAL TRANSPLANT
     Route: 048
     Dates: start: 20120526

REACTIONS (4)
  - General physical health deterioration [Fatal]
  - Pneumonia klebsiella [Recovering/Resolving]
  - Infectious disease carrier [Recovering/Resolving]
  - Pneumocystis jiroveci pneumonia [Recovering/Resolving]
